FAERS Safety Report 14974904 (Version 1)
Quarter: 2018Q2

REPORT INFORMATION
  Report Type: Spontaneous
  Country: US (occurrence: US)
  Receive Date: 20180605
  Receipt Date: 20180605
  Transmission Date: 20180711
  Serious: No
  Sender: FDA-Public Use
  Company Number: US-PFIZER INC-2018124800

PATIENT
  Age: 86 Year
  Sex: Female

DRUGS (1)
  1. VFEND [Suspect]
     Active Substance: VORICONAZOLE
     Indication: ATYPICAL MYCOBACTERIAL LOWER RESPIRATORY TRACT INFECTION
     Dosage: 200 MG, 2X/DAY
     Route: 048
     Dates: start: 20170803

REACTIONS (3)
  - Drug intolerance [Not Recovered/Not Resolved]
  - Visual impairment [Not Recovered/Not Resolved]
  - Pruritus [Not Recovered/Not Resolved]
